FAERS Safety Report 5203525-4 (Version None)
Quarter: 2007Q1

REPORT INFORMATION
  Report Type: 
  Country: None (occurrence: None)
  Receive Date: 20070105
  Receipt Date: 20070104
  Transmission Date: 20070707
  Serious: Yes (Congenital Anomaly)
  Sender: FDA-Public Use
  Company Number: FR-1160184

PATIENT
  Age: 1 Day
  Sex: Male

DRUGS (1)
  1. TRAVATAN [Suspect]
     Dosage: EYE DROPS, SOLUTION
     Route: 064
     Dates: start: 20050202, end: 20050323

REACTIONS (2)
  - DRUG EXPOSURE DURING PREGNANCY [None]
  - VESICOURETERIC REFLUX [None]
